FAERS Safety Report 15608802 (Version 2)
Quarter: 2019Q1

REPORT INFORMATION
  Report Type: Spontaneous
  Country: US (occurrence: US)
  Receive Date: 20181112
  Receipt Date: 20190108
  Transmission Date: 20190417
  Serious: No
  Sender: FDA-Public Use
  Company Number: US-SA-2018SA307536

PATIENT
  Age: 62 Year
  Sex: Male

DRUGS (1)
  1. LANTUS SOLOSTAR [Suspect]
     Active Substance: INSULIN GLARGINE
     Indication: TYPE 1 DIABETES MELLITUS
     Dosage: 30-40 UNITS AT BED TIME
     Dates: start: 2008

REACTIONS (1)
  - Blood glucose decreased [Unknown]

NARRATIVE: CASE EVENT DATE: 201810
